FAERS Safety Report 9928438 (Version 2)
Quarter: 2014Q2

REPORT INFORMATION
  Report Type: Spontaneous
  Country: US (occurrence: AU)
  Receive Date: 20140227
  Receipt Date: 20140618
  Transmission Date: 20141212
  Serious: Yes (Hospitalization)
  Sender: FDA-Public Use
  Company Number: US-SA-2014SA023541

PATIENT
  Age: 48 Year
  Sex: Female

DRUGS (42)
  1. LOVENOX [Suspect]
     Indication: PULMONARY EMBOLISM
     Route: 065
     Dates: start: 20131103
  2. INVESTIGATIONAL DRUG [Suspect]
     Indication: RENAL CELL CARCINOMA
     Dosage: 1/2 WEEK
     Route: 042
     Dates: start: 20130813, end: 20130909
  3. INVESTIGATIONAL DRUG [Suspect]
     Indication: RENAL CELL CARCINOMA
     Route: 065
     Dates: start: 20130910, end: 20131007
  4. INVESTIGATIONAL DRUG [Suspect]
     Indication: RENAL CELL CARCINOMA
     Dosage: EVERY TWO WEEKS.
     Route: 065
     Dates: start: 20131126, end: 20131223
  5. INVESTIGATIONAL DRUG [Suspect]
     Indication: RENAL CELL CARCINOMA
     Dosage: EVERY TWO WEEKS.
     Route: 065
     Dates: start: 20131224
  6. OMEPRAZOLE [Concomitant]
     Dates: start: 20121215, end: 20131002
  7. SPIRIVA [Concomitant]
     Dates: start: 20130301, end: 20131002
  8. SALBUTAMOL [Concomitant]
     Dates: start: 20130301, end: 20131002
  9. IBUPROFEN [Concomitant]
     Dates: start: 20130906
  10. PANADOL [Concomitant]
     Dates: start: 20130906
  11. ENDONE [Concomitant]
     Dates: start: 20130910
  12. OXYCONTIN [Concomitant]
     Dates: start: 20130912
  13. ONDANSETRON [Concomitant]
  14. MORPHINE [Concomitant]
     Dates: start: 20131010, end: 20131013
  15. MORPHINE [Concomitant]
     Dates: start: 20131017, end: 20131019
  16. SODIUM CITRATE/SODIUM LAURYL SULFOACETATE [Concomitant]
  17. SENNA [Concomitant]
  18. PANTOPRAZOLE [Concomitant]
  19. METOCLOPRAMIDE [Concomitant]
  20. PERINDOPRIL [Concomitant]
     Indication: HYPERTENSION
     Dates: start: 20130925, end: 20131002
  21. CELEBREX [Concomitant]
     Indication: BACK PAIN
     Dates: start: 20130924, end: 20131002
  22. DEXAMETHASONE [Concomitant]
     Dates: start: 20131010, end: 20131013
  23. DEXAMETHASONE [Concomitant]
     Dates: start: 20131014, end: 20131016
  24. DEXAMETHASONE [Concomitant]
     Dates: start: 20131021, end: 20131023
  25. SYMBICORT [Concomitant]
     Dates: start: 20130801, end: 20131002
  26. PARACETAMOL [Concomitant]
     Dates: start: 20130906
  27. IBUPROFEN [Concomitant]
     Dates: start: 20130906, end: 20131002
  28. FRUSEMIDE [Concomitant]
  29. KETAMINE [Concomitant]
     Dates: start: 20131010, end: 20131012
  30. POLYETHYLENE GLYCOL [Concomitant]
  31. GLYCERIN [Concomitant]
  32. CALCIUM CARBONATE/MAGNESIUM CARBONATE [Concomitant]
  33. BISALAX [Concomitant]
  34. CEFAZOLIN [Concomitant]
     Dates: start: 20131010, end: 20131013
  35. FENTANYL [Concomitant]
     Dates: start: 20131010
  36. DIAZEPAM [Concomitant]
  37. HEPARIN [Concomitant]
  38. AMITRIPTYLINE [Concomitant]
  39. TRAMADOL [Concomitant]
     Dates: start: 20131015
  40. ALL OTHER THERAPEUTIC PRODUCTS [Concomitant]
     Dates: start: 20131017
  41. TIOTROPIUM [Concomitant]
  42. DOCUSATE SODIUM [Concomitant]

REACTIONS (5)
  - Metastases to central nervous system [Recovered/Resolved]
  - Cerebral haemorrhage [Recovered/Resolved]
  - Spinal cord compression [Recovering/Resolving]
  - Post procedural complication [Recovered/Resolved]
  - Pulmonary embolism [Recovered/Resolved]
